FAERS Safety Report 17071918 (Version 1)
Quarter: 2019Q4

REPORT INFORMATION
  Report Type: Spontaneous
  Country: CA (occurrence: CA)
  Receive Date: 20191125
  Receipt Date: 20191125
  Transmission Date: 20200122
  Serious: Yes (Other)
  Sender: FDA-Public Use
  Company Number: CA-TEVA-2019-CA-1140166

PATIENT
  Age: 2 Year
  Sex: Male
  Weight: 12.71 kg

DRUGS (1)
  1. NOVAMOXIN [Suspect]
     Active Substance: AMOXICILLIN
     Indication: OTITIS MEDIA
     Dosage: 15 ML DAILY;
     Route: 048

REACTIONS (1)
  - Serum sickness [Recovered/Resolved]
